FAERS Safety Report 10191578 (Version 1)
Quarter: 2014Q2

REPORT INFORMATION
  Report Type: Spontaneous
  Country: US (occurrence: None)
  Receive Date: 20140522
  Receipt Date: 20140522
  Transmission Date: 20141212
  Serious: Yes (Hospitalization)
  Sender: FDA-Public Use
  Company Number: None

PATIENT
  Age: 48 Year
  Sex: Male
  Weight: 123.83 kg

DRUGS (1)
  1. CREST PRO HEALTH RINSE [Suspect]
     Indication: DENTAL DISORDER PROPHYLAXIS
     Dosage: 20 ML TWICE DAILY RINSE 30 SECONDS
     Dates: start: 20140504, end: 20140504

REACTIONS (5)
  - Oral discomfort [None]
  - Swollen tongue [None]
  - Gingival swelling [None]
  - Oral mucosal exfoliation [None]
  - Dysgeusia [None]
